FAERS Safety Report 4383329-5 (Version None)
Quarter: 2004Q2

REPORT INFORMATION
  Report Type: 
  Country: None (occurrence: None)
  Receive Date: 20040618
  Receipt Date: 20040601
  Transmission Date: 20050107
  Serious: Yes (Other)
  Sender: FDA-Public Use
  Company Number: US_000745409

PATIENT
  Sex: Female
  Weight: 100 kg

DRUGS (3)
  1. HUMALOG [Suspect]
     Indication: DIABETES MELLITUS
     Dosage: 24 U/1 DAY
     Dates: start: 19960101
  2. HUMULIN L [Suspect]
     Indication: DIABETES MELLITUS
     Dosage: 24 U/1 DAY
     Dates: start: 20010101
  3. HUMULIN N [Suspect]
     Indication: DIABETES MELLITUS
     Dosage: 14 U/1 IN THE MORNING
     Dates: start: 19820101

REACTIONS (9)
  - BLOOD GLUCOSE FLUCTUATION [None]
  - CHLOROPSIA [None]
  - DIABETIC RETINOPATHY [None]
  - FEELING ABNORMAL [None]
  - HYPERGLYCAEMIA [None]
  - HYPOGLYCAEMIA [None]
  - IMPAIRED HEALING [None]
  - SKIN LACERATION [None]
  - WEIGHT INCREASED [None]
